FAERS Safety Report 7349757-0 (Version None)
Quarter: 2011Q1

REPORT INFORMATION
  Report Type: 
  Country: None (occurrence: None)
  Receive Date: 20110302
  Receipt Date: 20110216
  Transmission Date: 20110831
  Serious: Yes (Life-Threatening, Hospitalization)
  Sender: FDA-Public Use
  Company Number: 2011AP000273

PATIENT
  Age: 79 Year
  Sex: Female

DRUGS (18)
  1. DIGOXIN [Suspect]
     Indication: ATRIAL FIBRILLATION
     Dosage: 125 UG;PO;QD
     Route: 048
  2. LANSOPRAZOLE [Concomitant]
  3. TRIMETHOPRIM [Suspect]
     Indication: CHRONIC OBSTRUCTIVE PULMONARY DISEASE
     Dosage: PO
     Route: 048
     Dates: start: 20110107, end: 20110113
  4. TRIMETHOPRIM [Suspect]
     Indication: LOWER RESPIRATORY TRACT INFECTION
     Dosage: PO
     Route: 048
     Dates: start: 20110107, end: 20110113
  5. BISOPROLOL (BISOPROLOL) [Concomitant]
  6. FLUTICASONE PROPIONATE W/SALMETEROL (FLUTICASONE PROPIONATE W./SALMETE [Concomitant]
  7. AMLODIPINE [Concomitant]
  8. ALBUTEROL SULFATE [Concomitant]
  9. DOXYCYCLINE [Concomitant]
  10. GLICLAZIDE (GLICLAZIDE) [Concomitant]
  11. GLYCERYL TRINTRATE (GLYCERYL TRINTRATE) [Concomitant]
  12. WARFARIN (WARFARIN) [Concomitant]
  13. CLARITHROMYCIN [Suspect]
     Indication: LOWER RESPIRATORY TRACT INFECTION
     Dosage: PO
     Route: 048
     Dates: start: 20110113
  14. CLARITHROMYCIN [Suspect]
     Indication: CHRONIC OBSTRUCTIVE PULMONARY DISEASE
     Dosage: PO
     Route: 048
     Dates: start: 20110113
  15. FUROSEMIDE [Concomitant]
  16. PREDNISOLONE [Concomitant]
  17. ATORVASTATIN (ATORVASTATIN) [Concomitant]
  18. IPRATROPIUM BROMIDE [Concomitant]

REACTIONS (16)
  - CONFUSIONAL STATE [None]
  - HYPERSENSITIVITY [None]
  - ATRIAL FIBRILLATION [None]
  - BRADYCARDIA [None]
  - HYPOTHERMIA [None]
  - UNRESPONSIVE TO STIMULI [None]
  - CHRONIC OBSTRUCTIVE PULMONARY DISEASE [None]
  - LOWER RESPIRATORY TRACT INFECTION [None]
  - DRUG INTERACTION [None]
  - MALAISE [None]
  - RASH [None]
  - DECREASED APPETITE [None]
  - DIARRHOEA [None]
  - DYSPNOEA [None]
  - TOXICITY TO VARIOUS AGENTS [None]
  - DRUG HYPERSENSITIVITY [None]
